FAERS Safety Report 7180692-7 (Version None)
Quarter: 2010Q4

REPORT INFORMATION
  Report Type: 
  Country: None (occurrence: None)
  Receive Date: 20101221
  Receipt Date: 20101216
  Transmission Date: 20110411
  Serious: Yes (Other)
  Sender: FDA-Public Use
  Company Number: US-AMGEN-QUU417887

PATIENT

DRUGS (5)
  1. NPLATE [Suspect]
     Indication: IDIOPATHIC THROMBOCYTOPENIC PURPURA
     Dosage: 250 A?G, QWK
     Route: 058
     Dates: start: 20090618
  2. NPLATE [Suspect]
     Dosage: 250 A?G/KG, QWK
     Route: 058
     Dates: start: 20090729
  3. NPLATE [Suspect]
     Dosage: 200 A?G/KG, QWK
     Route: 058
     Dates: start: 20100226
  4. NPLATE [Suspect]
     Dosage: 250 A?G/KG, QWK
     Route: 058
     Dates: start: 20100608
  5. NPLATE [Suspect]
     Dosage: UNK A?G/KG, UNK
     Dates: start: 20101126

REACTIONS (5)
  - FIBROSIS [None]
  - LYMPHADENOPATHY [None]
  - OROPHARYNGEAL PAIN [None]
  - PLATELET COUNT DECREASED [None]
  - THERAPEUTIC RESPONSE DECREASED [None]
